FAERS Safety Report 7027000-X (Version None)
Quarter: 2010Q4

REPORT INFORMATION
  Report Type: 
  Country: None (occurrence: None)
  Receive Date: 20101004
  Receipt Date: 20100922
  Transmission Date: 20110411
  Serious: Yes (Life-Threatening, Hospitalization)
  Sender: FDA-Public Use
  Company Number: GB-JNJFOC-20100907522

PATIENT
  Age: 60 Year
  Sex: Male
  Weight: 84 kg

DRUGS (12)
  1. INFLIXIMAB, RECOMBINANT [Suspect]
     Indication: CROHN'S DISEASE
     Route: 042
  2. INFLIXIMAB, RECOMBINANT [Suspect]
     Route: 042
  3. ZINC SULPHATE [Concomitant]
     Indication: CROHN'S DISEASE
  4. LOPERAMIDE [Concomitant]
     Indication: CROHN'S DISEASE
  5. OLANZAPINE [Concomitant]
  6. FOLIC ACID [Concomitant]
     Indication: CROHN'S DISEASE
  7. LORAZEPAM [Concomitant]
     Indication: DEPRESSION
  8. METHOTREXATE [Concomitant]
  9. ASPIRIN [Concomitant]
  10. CALCEOS [Concomitant]
  11. SYTRON [Concomitant]
  12. OMEPRAZOLE [Concomitant]

REACTIONS (2)
  - HEADACHE [None]
  - LOSS OF CONSCIOUSNESS [None]
